FAERS Safety Report 9636452 (Version 2)
Quarter: 2014Q1

REPORT INFORMATION
  Report Type: Spontaneous
  Country: US (occurrence: US)
  Receive Date: 20131021
  Receipt Date: 20140331
  Transmission Date: 20141002
  Serious: Yes (Hospitalization)
  Sender: FDA-Public Use
  Company Number: US-B.I. PHARMACEUTICALS,INC./RIDGEFIELD-2013-BI-33036BP

PATIENT
  Sex: Female
  Weight: 39.92 kg

DRUGS (8)
  1. PRADAXA [Suspect]
     Indication: ATRIAL FIBRILLATION
     Dosage: 300 MG
     Route: 048
     Dates: start: 20110408, end: 20121117
  2. ADVAIR [Concomitant]
     Dosage: 2 PUF
     Route: 055
  3. COREG [Concomitant]
     Indication: HEART RATE ABNORMAL
     Dosage: 6.25 MG
     Route: 048
  4. CARDIZEM LA [Concomitant]
     Indication: HEART RATE ABNORMAL
     Dosage: 120 MG
     Route: 048
  5. MULTIVITAMIN [Concomitant]
     Route: 048
  6. LASIX [Concomitant]
     Route: 065
  7. FERROUS GLUCONATE [Concomitant]
     Route: 065
  8. CALCIUM 600 + D [Concomitant]
     Route: 048

REACTIONS (4)
  - Haemoptysis [Recovered/Resolved]
  - Coagulopathy [Unknown]
  - Haemorrhage [Unknown]
  - Bronchitis [Unknown]
